FAERS Safety Report 5809907-1 (Version None)
Quarter: 2008Q3

REPORT INFORMATION
  Report Type: 
  Country: None (occurrence: None)
  Receive Date: 20080715
  Receipt Date: 20080708
  Transmission Date: 20090109
  Serious: Yes (Hospitalization)
  Sender: FDA-Public Use
  Company Number: NL-TEVA-174187ISR

PATIENT
  Sex: Male
  Weight: 56 kg

DRUGS (11)
  1. BACTRIM [Suspect]
     Indication: PNEUMOCYSTIS JIROVECI INFECTION
     Dates: start: 20040106, end: 20080402
  2. BACTRIM [Interacting]
     Dates: start: 20040106, end: 20080402
  3. DICLOFENAC [Interacting]
     Indication: ARTHRALGIA
     Dates: start: 20071109, end: 20080402
  4. VIREAD [Interacting]
     Indication: HIV INFECTION
     Dates: start: 20040106, end: 20080402
  5. METHADONE HYDROCHLORIDE [Concomitant]
     Dates: start: 19950101
  6. PROMETHAZINE [Concomitant]
     Dates: start: 19950101
  7. LAMIVUDINE [Concomitant]
     Dates: start: 20040101, end: 20080402
  8. KALETRA [Concomitant]
     Dosage: 200/50 MG 2 TIMES PER 1 DAYS 2 DF
     Dates: start: 20070501, end: 20080402
  9. ESOMEPRAZOLE MAGNESIUM [Concomitant]
     Dates: start: 20071101
  10. FLUCONAZOLE [Concomitant]
     Dates: start: 20070901
  11. DIAZEPAM [Concomitant]
     Dates: start: 20000101

REACTIONS (2)
  - DRUG INTERACTION [None]
  - RENAL FAILURE [None]
